FAERS Safety Report 8323308-6 (Version None)
Quarter: 2012Q2

REPORT INFORMATION
  Report Type: 
  Country: None (occurrence: None)
  Receive Date: 20120430
  Receipt Date: 20120425
  Transmission Date: 20120825
  Serious: No
  Sender: FDA-Public Use
  Company Number: US-PFIZER INC-2012103391

PATIENT
  Sex: Female
  Weight: 56.689 kg

DRUGS (4)
  1. EFFEXOR XR [Suspect]
     Indication: MOOD SWINGS
     Dosage: 150 MG, 1X/DAY
     Route: 048
     Dates: start: 20080701
  2. EFFEXOR [Suspect]
     Indication: MOOD SWINGS
     Dosage: 37.5 MG, AS NEEDED
     Dates: start: 20120401
  3. EFFEXOR XR [Suspect]
     Indication: ANXIETY
     Dosage: 150 MG, AS NEEDED
     Route: 048
  4. EFFEXOR [Suspect]
     Indication: ANXIETY

REACTIONS (2)
  - ANXIETY [None]
  - DISTURBANCE IN ATTENTION [None]
